FAERS Safety Report 6096983-7 (Version None)
Quarter: 2009Q1

REPORT INFORMATION
  Report Type: 
  Country: None (occurrence: None)
  Receive Date: 20090227
  Receipt Date: 20090217
  Transmission Date: 20090719
  Serious: Yes (Disabling)
  Sender: FDA-Public Use
  Company Number: DK-PFIZER INC-2009174233

PATIENT

DRUGS (7)
  1. SERTRALINE HCL [Suspect]
     Indication: DEPRESSION
     Dosage: 50 MG, 1X/DAY
     Route: 048
     Dates: start: 20060201, end: 20060401
  2. AKARIN [Concomitant]
     Dosage: UNK
     Dates: start: 20050201, end: 20060201
  3. RIVOTRIL [Concomitant]
     Dosage: UNK
     Dates: start: 20060401, end: 20060401
  4. TOPIMAX [Concomitant]
  5. LYRICA [Concomitant]
     Dosage: UNK
     Dates: start: 20060801
  6. RISPERDAL [Concomitant]
  7. AKARIN [Suspect]
     Dosage: UNK
     Dates: start: 20060401, end: 20060401

REACTIONS (3)
  - FATIGUE [None]
  - MYALGIA [None]
  - MYOCLONUS [None]
